FAERS Safety Report 5831782-X (Version None)
Quarter: 2008Q3

REPORT INFORMATION
  Report Type: 
  Country: None (occurrence: None)
  Receive Date: 20080803
  Receipt Date: 20080724
  Transmission Date: 20090109
  Serious: Yes (Other)
  Sender: FDA-Public Use
  Company Number: GB-JNJFOC-20080706031

PATIENT
  Sex: Female
  Weight: 62 kg

DRUGS (6)
  1. REMICADE [Suspect]
     Indication: RHEUMATOID ARTHRITIS
     Route: 042
  2. PREDNISOLONE [Concomitant]
  3. CO-CODAMOL [Concomitant]
  4. FOSAMAX [Concomitant]
  5. FEXOFENADINE HCL [Concomitant]
  6. METHOTREXATE [Concomitant]

REACTIONS (1)
  - UTERINE POLYP [None]
